FAERS Safety Report 8380974-7 (Version None)
Quarter: 2012Q2

REPORT INFORMATION
  Report Type: 
  Country: None (occurrence: None)
  Receive Date: 20120515
  Receipt Date: 20120503
  Transmission Date: 20120825
  Serious: Yes (Congenital Anomaly, Other)
  Sender: FDA-Public Use
  Company Number: 2012032230

PATIENT

DRUGS (6)
  1. IMMUNE GLOBULIN INTRAVENOUS (HUMAN) [Suspect]
  2. ASPIRIN [Concomitant]
  3. INTRALIPID 10% [Suspect]
  4. CYCLOGEST (PROGESERONE) [Concomitant]
  5. PREDNISOLONE [Concomitant]
  6. PROGESTERONE (PREGESTERONE) [Concomitant]

REACTIONS (4)
  - MATERNAL DRUGS AFFECTING FOETUS [None]
  - OFF LABEL USE [None]
  - VANISHING TWIN SYNDROME [None]
  - FOETAL GROWTH RESTRICTION [None]
